FAERS Safety Report 10380350 (Version 3)
Quarter: 2014Q3

REPORT INFORMATION
  Report Type: Spontaneous
  Country: DE (occurrence: DE)
  Receive Date: 20140813
  Receipt Date: 20140902
  Transmission Date: 20150326
  Serious: Yes (Disabling, Other)
  Sender: FDA-Public Use
  Company Number: DE-BAYER-2014-118306

PATIENT
  Age: 22 Year
  Sex: Female

DRUGS (3)
  1. SPASMEX [Concomitant]
     Active Substance: TROSPIUM CHLORIDE
  2. IBUPROFEN. [Concomitant]
     Active Substance: IBUPROFEN
     Dosage: 600 MG, QOD
  3. BETAFERON [Suspect]
     Active Substance: INTERFERON BETA-1B
     Indication: MULTIPLE SCLEROSIS
     Dosage: 250 MCG/ML, QOD
     Route: 058
     Dates: start: 20140428, end: 20140630

REACTIONS (7)
  - Pathologic myopia [None]
  - Retinopathy [None]
  - Leukopenia [None]
  - Liver function test abnormal [None]
  - Retinal haemorrhage [None]
  - Retinal vascular disorder [None]
  - Blindness [None]
